FAERS Safety Report 16983610 (Version 2)
Quarter: 2021Q1

REPORT INFORMATION
  Report Type: Spontaneous
  Country: US (occurrence: US)
  Receive Date: 20191101
  Receipt Date: 20210322
  Transmission Date: 20210419
  Serious: Yes (Other)
  Sender: FDA-Public Use
  Company Number: US-PFIZER INC-2019470921

PATIENT
  Age: 31 Year
  Sex: Female

DRUGS (1)
  1. PREGABALIN. [Suspect]
     Active Substance: PREGABALIN
     Dosage: 225 MG, UNK

REACTIONS (3)
  - Autonomic neuropathy [Unknown]
  - Drug ineffective [Unknown]
  - Sleep disorder [Unknown]
